FAERS Safety Report 5966871-2 (Version None)
Quarter: 2008Q4

REPORT INFORMATION
  Report Type: 
  Country: None (occurrence: None)
  Receive Date: 20081125
  Receipt Date: 20081117
  Transmission Date: 20090506
  Serious: Yes (Life-Threatening, Hospitalization, Disabling, Other)
  Sender: FDA-Public Use
  Company Number: DE-ABBOTT-08P-062-0444091-00

PATIENT
  Sex: Female
  Weight: 64 kg

DRUGS (7)
  1. KALETRA [Suspect]
     Indication: HIV INFECTION
     Route: 048
     Dates: start: 20080212, end: 20080418
  2. TRUVADA [Concomitant]
     Indication: DRUG USE FOR UNKNOWN INDICATION
     Route: 048
     Dates: start: 20080530, end: 20080612
  3. TRUVADA [Concomitant]
  4. EFAVIRENZ [Concomitant]
     Indication: DRUG USE FOR UNKNOWN INDICATION
     Route: 048
     Dates: start: 20080530, end: 20080717
  5. AZT (RETROVIR) [Concomitant]
     Indication: DRUG USE FOR UNKNOWN INDICATION
     Route: 048
     Dates: start: 20080417, end: 20080814
  6. ENFUVIRTIDE [Concomitant]
     Indication: DRUG USE FOR UNKNOWN INDICATION
     Dosage: 1-0-1, 2 IN 1 DAYS
     Route: 058
     Dates: start: 20080814
  7. PENTAMIDINE [Concomitant]
     Indication: DRUG USE FOR UNKNOWN INDICATION
     Dosage: PCP-PROPHYLAXIS, 1 IN 4 WEEKS
     Dates: start: 20080917

REACTIONS (13)
  - ANAEMIA [None]
  - BONE MARROW DISORDER [None]
  - CRYPTOCOCCOSIS [None]
  - DIARRHOEA [None]
  - DISSEMINATED TUBERCULOSIS [None]
  - GENERAL PHYSICAL CONDITION ABNORMAL [None]
  - HEPATIC FAILURE [None]
  - HEPATIC STEATOSIS [None]
  - LYMPH NODE TUBERCULOSIS [None]
  - ORAL PAIN [None]
  - PANCYTOPENIA [None]
  - SPLENOMEGALY [None]
  - TUBERCULOSIS [None]
